FAERS Safety Report 15648024 (Version 1)
Quarter: 2018Q4

REPORT INFORMATION
  Report Type: Spontaneous
  Country: US (occurrence: US)
  Receive Date: 20181122
  Receipt Date: 20181122
  Transmission Date: 20190205
  Serious: No
  Sender: FDA-Public Use
  Company Number: US-ALEXION PHARMACEUTICALS INC.-A201815268

PATIENT
  Age: 59 Year
  Sex: Female

DRUGS (4)
  1. STRENSIQ [Suspect]
     Active Substance: ASFOTASE ALFA
     Dosage: 47 MG, SIX TIMES PER WEEK
     Route: 065
  2. STRENSIQ [Suspect]
     Active Substance: ASFOTASE ALFA
     Indication: HYPOPHOSPHATASIA
     Dosage: UNK
     Route: 065
     Dates: start: 201707
  3. STRENSIQ [Suspect]
     Active Substance: ASFOTASE ALFA
     Dosage: .24 ML, TWICE WEEKLY
     Route: 065
     Dates: start: 20181115
  4. STRENSIQ [Suspect]
     Active Substance: ASFOTASE ALFA
     Dosage: UNK, 6 TIMES A WEEK
     Route: 058
     Dates: end: 201803

REACTIONS (10)
  - Rib fracture [Unknown]
  - Fall [Unknown]
  - Depression [Unknown]
  - Frustration tolerance decreased [Unknown]
  - Drug ineffective [Unknown]
  - Back pain [Unknown]
  - Injection site rash [Recovered/Resolved]
  - Needle fatigue [Unknown]
  - Treatment noncompliance [Recovered/Resolved]
  - Gallbladder disorder [Unknown]

NARRATIVE: CASE EVENT DATE: 201707
